FAERS Safety Report 5346432-9 (Version None)
Quarter: 2007Q2

REPORT INFORMATION
  Report Type: 
  Country: None (occurrence: None)
  Receive Date: 20070605
  Receipt Date: 20070404
  Transmission Date: 20071010
  Serious: Yes (Hospitalization, Other)
  Sender: FDA-Public Use
  Company Number: DE-BRISTOL-MYERS SQUIBB COMPANY-13738802

PATIENT
  Age: 77 Year
  Sex: Male

DRUGS (4)
  1. APIXABAN [Suspect]
     Indication: ACUTE CORONARY SYNDROME
     Dates: start: 20070322
  2. BLINDED: PLACEBO [Suspect]
     Indication: ACUTE CORONARY SYNDROME
     Dates: start: 20070322
  3. ASPIRIN [Concomitant]
     Dates: start: 20070320
  4. ISCOVER [Concomitant]
     Dates: start: 20070320

REACTIONS (2)
  - GASTROINTESTINAL HAEMORRHAGE [None]
  - HAEMORRHOIDAL HAEMORRHAGE [None]
